FAERS Safety Report 11690760 (Version 2)
Quarter: 2015Q4

REPORT INFORMATION
  Report Type: Spontaneous
  Country: JP (occurrence: JP)
  Receive Date: 20151102
  Receipt Date: 20151106
  Transmission Date: 20160304
  Serious: Yes (Other)
  Sender: FDA-Public Use
  Company Number: JP-BAYER-2015-450632

PATIENT
  Age: 46 Year
  Sex: Female

DRUGS (2)
  1. BAYASPIRIN [Suspect]
     Active Substance: ASPIRIN
     Dosage: 100 MG, QD
     Route: 048
  2. WARFARIN [Interacting]
     Active Substance: WARFARIN
     Dosage: 4 MG, QD
     Route: 048

REACTIONS (3)
  - Brown-Sequard syndrome [None]
  - Spinal epidural haematoma [Recovered/Resolved]
  - Labelled drug-drug interaction medication error [None]
